FAERS Safety Report 11216414 (Version 1)
Quarter: 2015Q2

REPORT INFORMATION
  Report Type: Spontaneous
  Country: US (occurrence: None)
  Receive Date: 20150623
  Receipt Date: 20150623
  Transmission Date: 20150821
  Serious: Yes (Hospitalization, Disabling)
  Sender: FDA-Public Use
  Company Number: None

PATIENT
  Age: 50 Year
  Sex: Female

DRUGS (2)
  1. REMICADE [Suspect]
     Active Substance: INFLIXIMAB
     Indication: CROHN^S DISEASE
  2. HUMIRA [Suspect]
     Active Substance: ADALIMUMAB

REACTIONS (7)
  - Food intolerance [None]
  - Injection site pain [None]
  - Injection site bruising [None]
  - Therapy cessation [None]
  - Drug specific antibody present [None]
  - Drug effect decreased [None]
  - Malaise [None]

NARRATIVE: CASE EVENT DATE: 20140101
